FAERS Safety Report 6905664-6 (Version None)
Quarter: 2010Q3

REPORT INFORMATION
  Report Type: 
  Country: None (occurrence: None)
  Receive Date: 20100804
  Receipt Date: 20100729
  Transmission Date: 20110219
  Serious: Yes (Other)
  Sender: FDA-Public Use
  Company Number: FR-BRISTOL-MYERS SQUIBB COMPANY-15217615

PATIENT
  Age: 72 Year
  Sex: Female

DRUGS (5)
  1. SPRYCEL [Suspect]
     Indication: CHRONIC MYELOID LEUKAEMIA
     Dosage: DECIDED TO REINTRODUCE AT 50MG PER DAY
     Route: 048
     Dates: start: 20100616
  2. FLECAINIDE ACETATE [Concomitant]
     Indication: ARRHYTHMIA
     Dosage: FLECAINE 150MG LP
     Route: 048
  3. KARDEGIC [Concomitant]
     Indication: ARRHYTHMIA
     Route: 048
  4. BISOPROLOL FUMARATE [Concomitant]
     Indication: ARRHYTHMIA
     Route: 048
  5. LASIX [Concomitant]
     Route: 048

REACTIONS (2)
  - ATRIAL FIBRILLATION [None]
  - WEIGHT INCREASED [None]
